FAERS Safety Report 4772812-6 (Version None)
Quarter: 2005Q3

REPORT INFORMATION
  Report Type: 
  Country: None (occurrence: None)
  Receive Date: 20050919
  Receipt Date: 20050721
  Transmission Date: 20060218
  Serious: Yes (Other)
  Sender: FDA-Public Use
  Company Number: US-MERCK-0507USA03320

PATIENT
  Age: 41 Year
  Sex: Female
  Weight: 73 kg

DRUGS (8)
  1. SINGULAIR [Suspect]
     Indication: HYPERSENSITIVITY
     Route: 048
     Dates: start: 20040701, end: 20040801
  2. SINGULAIR [Suspect]
     Route: 048
     Dates: start: 20040801, end: 20040901
  3. SINGULAIR [Suspect]
     Indication: ASTHMA
     Route: 048
     Dates: start: 20040701, end: 20040801
  4. SINGULAIR [Suspect]
     Route: 048
     Dates: start: 20040801, end: 20040901
  5. CLARINEX [Concomitant]
     Indication: HYPERSENSITIVITY
     Route: 048
     Dates: start: 20020101
  6. PRILOSEC [Concomitant]
     Indication: GASTROOESOPHAGEAL REFLUX DISEASE
     Route: 048
     Dates: start: 19990101
  7. ADVAIR DISKUS 100/50 [Concomitant]
     Indication: ASTHMA
     Route: 055
     Dates: start: 20030101
  8. SLOW FE [Concomitant]
     Indication: ANAEMIA
     Route: 048
     Dates: start: 20000101

REACTIONS (1)
  - FIBROMYALGIA [None]
